FAERS Safety Report 8454079-0 (Version None)
Quarter: 2012Q2

REPORT INFORMATION
  Report Type: 
  Country: None (occurrence: None)
  Receive Date: 20120620
  Receipt Date: 20120615
  Transmission Date: 20120825
  Serious: Yes (Other)
  Sender: FDA-Public Use
  Company Number: US-PFIZER INC-2011178058

PATIENT

DRUGS (2)
  1. SOLU-MEDROL [Suspect]
     Dosage: 40 MG/ML, UNK
     Route: 042
  2. SOLU-MEDROL [Suspect]
     Dosage: 40 MG/ML, UNK
     Route: 042

REACTIONS (2)
  - HALLUCINATION [None]
  - PSYCHOTIC DISORDER [None]
